FAERS Safety Report 9915304 (Version 2)
Quarter: 2015Q2

REPORT INFORMATION
  Report Type: Report from Study
  Country: US (occurrence: US)
  Receive Date: 20140221
  Receipt Date: 20150406
  Transmission Date: 20150821
  Serious: Yes (Death, Hospitalization)
  Sender: FDA-Public Use
  Company Number: US-ROCHE-1353743

PATIENT
  Sex: Female
  Weight: 70 kg

DRUGS (18)
  1. LORAZEPAM. [Concomitant]
     Active Substance: LORAZEPAM
     Dosage: WHEN REQUIRED
     Route: 048
  2. ZOFRAN [Concomitant]
     Active Substance: ONDANSETRON HYDROCHLORIDE
  3. FENTANYL. [Concomitant]
     Active Substance: FENTANYL
     Route: 062
  4. MEGACE [Concomitant]
     Active Substance: MEGESTROL ACETATE
     Route: 065
  5. COMPAZINE [Concomitant]
     Active Substance: PROCHLORPERAZINE MALEATE
  6. XELODA [Suspect]
     Active Substance: CAPECITABINE
     Indication: RECTAL CANCER
     Route: 048
     Dates: start: 20120522
  7. XELODA [Suspect]
     Active Substance: CAPECITABINE
     Indication: COLORECTAL CANCER
     Route: 048
     Dates: start: 20120522
  8. PROCHLORPERAZINE. [Concomitant]
     Active Substance: PROCHLORPERAZINE
     Route: 048
  9. DILAUDID [Concomitant]
     Active Substance: HYDROMORPHONE HYDROCHLORIDE
     Route: 048
  10. MIRALAX [Concomitant]
     Active Substance: POLYETHYLENE GLYCOL 3350
  11. AVASTIN [Suspect]
     Active Substance: BEVACIZUMAB
     Indication: RECTAL CANCER
     Route: 042
     Dates: start: 20120522
  12. ONDANSETRON [Concomitant]
     Active Substance: ONDANSETRON
     Dosage: ON DAY 1
     Route: 042
  13. FENTANYL. [Concomitant]
     Active Substance: FENTANYL
     Route: 062
  14. AVASTIN [Suspect]
     Active Substance: BEVACIZUMAB
     Indication: RECTAL CANCER METASTATIC
     Route: 042
     Dates: start: 20120516
  15. CELEXA (UNITED STATES) [Concomitant]
     Route: 065
  16. XELODA [Suspect]
     Active Substance: CAPECITABINE
     Indication: RECTAL CANCER METASTATIC
     Dosage: 1000 MG IN AM AND 1500 MG IN PM- 2 WKS ON/1 WK OFF
     Route: 048
     Dates: start: 201105, end: 20120331
  17. MIDAZOLAM [Concomitant]
     Active Substance: MIDAZOLAM\MIDAZOLAM HYDROCHLORIDE
     Route: 065
  18. AVASTIN [Suspect]
     Active Substance: BEVACIZUMAB
     Indication: COLORECTAL CANCER

REACTIONS (14)
  - Depression [Unknown]
  - Fatigue [Unknown]
  - Rectal haemorrhage [Recovered/Resolved with Sequelae]
  - Dyspnoea [Unknown]
  - Skin exfoliation [Unknown]
  - Normochromic normocytic anaemia [Unknown]
  - Vomiting [Unknown]
  - Decreased appetite [Unknown]
  - Nausea [Unknown]
  - Disease progression [Unknown]
  - Oedema peripheral [Unknown]
  - Proctalgia [Recovered/Resolved with Sequelae]
  - Asthenia [Unknown]
  - Death [Fatal]
